FAERS Safety Report 6371254-X (Version None)
Quarter: 2009Q3

REPORT INFORMATION
  Report Type: 
  Country: None (occurrence: None)
  Receive Date: 20090918
  Receipt Date: 20090904
  Transmission Date: 20100115
  Serious: Yes (Life-Threatening, Hospitalization)
  Sender: FDA-Public Use
  Company Number: 001673

PATIENT
  Age: 58 Year
  Sex: Male

DRUGS (3)
  1. CARBIDOPA AND LEVODOPA [Suspect]
     Indication: PARKINSON'S DISEASE
     Dosage: (500 MG)
  2. CABERGOLINE [Suspect]
     Dosage: (2 MG)
  3. QUETIAPINE FUMARATE [Suspect]
     Indication: HALLUCINATION
     Dosage: (50 MG)

REACTIONS (13)
  - AKINESIA [None]
  - BRAIN STEM SYNDROME [None]
  - CARDIO-RESPIRATORY ARREST [None]
  - COGNITIVE DISORDER [None]
  - DEPRESSED LEVEL OF CONSCIOUSNESS [None]
  - HEART RATE DECREASED [None]
  - HYPOTHALAMO-PITUITARY DISORDER [None]
  - HYPOTHERMIA [None]
  - MUSCLE RIGIDITY [None]
  - PSYCHIATRIC SYMPTOM [None]
  - STUPOR [None]
  - TEMPERATURE REGULATION DISORDER [None]
  - VENTRICULAR TACHYCARDIA [None]
